FAERS Safety Report 7210296-9 (Version None)
Quarter: 2010Q4

REPORT INFORMATION
  Report Type: 
  Country: None (occurrence: None)
  Receive Date: 20101223
  Receipt Date: 20101210
  Transmission Date: 20110411
  Serious: No
  Sender: FDA-Public Use
  Company Number: DSJ-2010-21003

PATIENT
  Age: 62 Year
  Sex: Female

DRUGS (2)
  1. OLMESARTAN MEDOXOMIL [Suspect]
     Indication: ESSENTIAL HYPERTENSION
     Dosage: 20 MG, PER ORAL
     Route: 048
     Dates: start: 20100608, end: 20100610
  2. LIPITOR [Concomitant]

REACTIONS (1)
  - DISCOMFORT [None]
